FAERS Safety Report 9978771 (Version 1)
Quarter: 2014Q1

REPORT INFORMATION
  Report Type: Report from Study
  Country: US (occurrence: US)
  Receive Date: 20140306
  Receipt Date: 20140306
  Transmission Date: 20141002
  Serious: No
  Sender: FDA-Public Use
  Company Number: US-ABBVIE-13P-163-1173528-00

PATIENT
  Age: 74 Year
  Sex: Female

DRUGS (5)
  1. HUMIRA [Suspect]
     Indication: PSORIASIS
     Dosage: 2 40MG PENS
     Dates: start: 20131114, end: 20131114
  2. HUMIRA [Suspect]
     Dates: start: 20131121
  3. LAMICTAL [Concomitant]
     Indication: EPILEPSY
     Route: 048
  4. SINGULAIR [Concomitant]
     Indication: SEASONAL ALLERGY
  5. ANTIBIOTICS [Concomitant]
     Indication: LOCALISED INFECTION

REACTIONS (3)
  - Drug dose omission [Unknown]
  - Wrong technique in drug usage process [Unknown]
  - Injection site pain [Unknown]
